FAERS Safety Report 7650045-3 (Version None)
Quarter: 2011Q3

REPORT INFORMATION
  Report Type: 
  Country: None (occurrence: None)
  Receive Date: 20110802
  Receipt Date: 20110802
  Transmission Date: 20111222
  Serious: No
  Sender: FDA-Public Use
  Company Number: None

PATIENT
  Sex: Female
  Weight: 102.05 kg

DRUGS (2)
  1. GAMMAGARD [Suspect]
     Indication: THROMBOCYTOPENIA
     Dosage: 100GM
     Route: 041
     Dates: start: 20110726, end: 20110726
  2. GAMMAGARD [Concomitant]
     Dosage: 100GM
     Route: 041
     Dates: start: 20110720, end: 20110720

REACTIONS (2)
  - THROMBOCYTOPENIA [None]
  - HAEMOLYTIC ANAEMIA [None]
